FAERS Safety Report 25034809 (Version 1)
Quarter: 2025Q1

REPORT INFORMATION
  Report Type: Spontaneous
  Country: LB (occurrence: LB)
  Receive Date: 20250304
  Receipt Date: 20250304
  Transmission Date: 20250409
  Serious: Yes (Hospitalization)
  Sender: JOHNSON AND JOHNSON
  Company Number: LB-JNJFOC-20250250084

PATIENT
  Age: 10 Year
  Sex: Female

DRUGS (2)
  1. REMICADE [Suspect]
     Active Substance: INFLIXIMAB
     Indication: Crohn^s disease
     Route: 041
  2. REMICADE [Suspect]
     Active Substance: INFLIXIMAB
     Route: 041

REACTIONS (6)
  - Intestinal tuberculosis [Recovered/Resolved]
  - Pneumonia klebsiella [Recovered/Resolved]
  - Meningitis tuberculous [Recovered/Resolved]
  - Disseminated tuberculosis [Recovered/Resolved]
  - Superinfection [Recovered/Resolved]
  - Off label use [Unknown]
